FAERS Safety Report 5175667-3 (Version None)
Quarter: 2006Q4

REPORT INFORMATION
  Report Type: 
  Country: None (occurrence: None)
  Receive Date: 20061211
  Receipt Date: 20061211
  Transmission Date: 20070319
  Serious: No
  Sender: FDA-Public Use
  Company Number: None

PATIENT
  Sex: Female
  Weight: 67.1324 kg

DRUGS (2)
  1. KEPPRA [Suspect]
     Indication: CONVULSION PROPHYLAXIS
     Dosage: 2 TABLETS TWICE DAILY
     Dates: start: 20061016, end: 20061204
  2. KEPPRA [Suspect]
     Indication: DISORIENTATION
     Dosage: 2 TABLETS TWICE DAILY
     Dates: start: 20061016, end: 20061204

REACTIONS (2)
  - DYSKINESIA [None]
  - VISION BLURRED [None]
